FAERS Safety Report 16404993 (Version 6)
Quarter: 2020Q3

REPORT INFORMATION
  Report Type: Report from Study
  Country: ES (occurrence: ES)
  Receive Date: 20190607
  Receipt Date: 20200821
  Transmission Date: 20201102
  Serious: Yes (Hospitalization, Other)
  Sender: FDA-Public Use
  Company Number: ES-ACTELION-A-CH2019-191191

PATIENT
  Age: 64 Year
  Sex: Male
  Weight: 75 kg

DRUGS (20)
  1. UPTRAVI [Suspect]
     Active Substance: SELEXIPAG
     Dosage: 2400 MCG, QD
     Route: 048
     Dates: start: 20200812, end: 20200816
  2. VENTAVIS [Concomitant]
     Active Substance: ILOPROST
     Dosage: 40 MCG, QD
     Route: 055
     Dates: start: 20191223
  3. TEOFILINA [Concomitant]
     Indication: EMPHYSEMA
     Dosage: UNK
     Route: 048
     Dates: start: 20050503
  4. FUROSEMIDA [Concomitant]
     Active Substance: FUROSEMIDE
     Indication: PULMONARY HYPERTENSION
     Dosage: UNK
     Route: 048
     Dates: start: 20190430
  5. UPTRAVI [Suspect]
     Active Substance: SELEXIPAG
     Dosage: 2000 MCG, QD
     Route: 048
     Dates: start: 20200303, end: 20200506
  6. UPTRAVI [Suspect]
     Active Substance: SELEXIPAG
     Dosage: 2000 MCG, QD
     Route: 048
     Dates: start: 20200817
  7. VENTAVIS [Concomitant]
     Active Substance: ILOPROST
     Indication: PULMONARY ARTERIAL HYPERTENSION
     Dosage: 50 MCG, QD
     Route: 055
     Dates: start: 20190430, end: 20191222
  8. ENOXAPARINA DE SODIO [Concomitant]
     Indication: PULMONARY HYPERTENSION
     Dosage: UNK
     Route: 058
     Dates: start: 20190502
  9. UPTRAVI [Suspect]
     Active Substance: SELEXIPAG
     Dosage: 2400 MCG, QD
     Route: 048
     Dates: start: 20200507, end: 20200714
  10. UPTRAVI [Suspect]
     Active Substance: SELEXIPAG
     Indication: PULMONARY ARTERIAL HYPERTENSION
     Dosage: 400 MCG, QD
     Route: 048
     Dates: start: 20191210, end: 20191218
  11. UPTRAVI [Suspect]
     Active Substance: SELEXIPAG
     Dosage: 800 MCG, QD
     Route: 048
     Dates: start: 20191219, end: 20200107
  12. IPRATROPIO BROMURO [Concomitant]
     Active Substance: IPRATROPIUM BROMIDE
     Indication: EMPHYSEMA
     Dosage: UNK
     Route: 055
     Dates: start: 20050503
  13. UPTRAVI [Suspect]
     Active Substance: SELEXIPAG
     Dosage: 1200 MCG, QD
     Route: 048
     Dates: start: 20200108, end: 20200203
  14. BUDESONIDA [Concomitant]
     Active Substance: BUDESONIDE
     Indication: EMPHYSEMA
     Dosage: UNK
     Route: 055
     Dates: start: 20050503
  15. OPSUMIT [Suspect]
     Active Substance: MACITENTAN
     Indication: PULMONARY ARTERIAL HYPERTENSION
     Dosage: 10 MG, QD
     Route: 048
     Dates: start: 20190430
  16. UPTRAVI [Suspect]
     Active Substance: SELEXIPAG
     Dosage: 1600 MCG, QD
     Route: 048
     Dates: start: 20200204, end: 20200302
  17. UPTRAVI [Suspect]
     Active Substance: SELEXIPAG
     Dosage: 2800 MCG, QD
     Route: 048
     Dates: start: 20200715, end: 20200811
  18. REVATIO [Concomitant]
     Active Substance: SILDENAFIL CITRATE
     Indication: PULMONARY ARTERIAL HYPERTENSION
     Dosage: 60 MG, QD
     Dates: start: 20190430
  19. OMEPRAZOL [Concomitant]
     Active Substance: OMEPRAZOLE
     Indication: GASTRITIS
     Dosage: UNK
     Route: 048
     Dates: start: 20150715
  20. ALOPURINOL [Concomitant]
     Active Substance: ALLOPURINOL
     Indication: HYPERURICAEMIA
     Dosage: UNK
     Route: 048
     Dates: start: 20100118

REACTIONS (9)
  - Condition aggravated [Recovered/Resolved]
  - Disease progression [Recovered/Resolved]
  - Tachycardia [Recovered/Resolved]
  - Dyspnoea exertional [Recovered/Resolved]
  - Catheterisation cardiac [Unknown]
  - Respiratory tract infection [Recovered/Resolved with Sequelae]
  - Pulmonary arterial hypertension [Recovered/Resolved]
  - Lung diffusion test decreased [Unknown]
  - Respiratory depression [Recovered/Resolved]

NARRATIVE: CASE EVENT DATE: 20190519
